FAERS Safety Report 5833146-1 (Version None)
Quarter: 2008Q3

REPORT INFORMATION
  Report Type: 
  Country: None (occurrence: None)
  Receive Date: 20080731
  Receipt Date: 20080717
  Transmission Date: 20090109
  Serious: Yes (Life-Threatening, Hospitalization)
  Sender: FDA-Public Use
  Company Number: CLOF-10714

PATIENT
  Age: 20 Year
  Sex: Female
  Weight: 64.5 kg

DRUGS (17)
  1. CLOFARABINE (CLOFARABINE) [Suspect]
     Indication: ACUTE LYMPHOCYTIC LEUKAEMIA
     Dosage: 75 MG,QDX5, INTRAVENOUS; 70 MG, QD, INTRAVENOUS
     Route: 042
     Dates: start: 20071008, end: 20071012
  2. CLOFARABINE (CLOFARABINE) [Suspect]
     Indication: ACUTE LYMPHOCYTIC LEUKAEMIA
     Dosage: 75 MG,QDX5, INTRAVENOUS; 70 MG, QD, INTRAVENOUS
     Route: 042
     Dates: start: 20071121, end: 20071124
  3. ETOPOSIDE [Suspect]
     Indication: ACUTE LYMPHOCYTIC LEUKAEMIA
     Dosage: 190 MG, QDX5, INTRAVENOUS; 170 MG, QD, INTRAVENOUS
     Route: 042
     Dates: start: 20071008, end: 20071012
  4. ETOPOSIDE [Suspect]
     Indication: ACUTE LYMPHOCYTIC LEUKAEMIA
     Dosage: 190 MG, QDX5, INTRAVENOUS; 170 MG, QD, INTRAVENOUS
     Route: 042
     Dates: start: 20071121, end: 20071124
  5. CYCLOPHOSPHAMIDE [Suspect]
     Indication: ACUTE LYMPHOCYTIC LEUKAEMIA
     Dosage: 835 MG, QDX5, INTRAVENOUS750 MG, QD, INTRAVENOUS
     Route: 042
     Dates: start: 20071008, end: 20071012
  6. CYCLOPHOSPHAMIDE [Suspect]
     Indication: ACUTE LYMPHOCYTIC LEUKAEMIA
     Dosage: 835 MG, QDX5, INTRAVENOUS750 MG, QD, INTRAVENOUS
     Route: 042
     Dates: start: 20071121, end: 20071124
  7. NOREPINEPHRINE BITARTRATE [Concomitant]
  8. EPINEPHRINE [Concomitant]
  9. VANCOMYCIN [Concomitant]
  10. ZOSYN [Concomitant]
  11. TOBRAMYCIN [Concomitant]
  12. DIFLUCAN [Concomitant]
  13. ACYCLOVIR [Concomitant]
  14. NEUPOGEN [Concomitant]
  15. ALLOPURINOL [Concomitant]
  16. ZOFRAN [Concomitant]
  17. CIPRO [Concomitant]

REACTIONS (36)
  - ALANINE AMINOTRANSFERASE INCREASED [None]
  - ASPARTATE AMINOTRANSFERASE INCREASED [None]
  - BACILLUS INFECTION [None]
  - BLOOD ALKALINE PHOSPHATASE INCREASED [None]
  - BLOOD CREATINE PHOSPHOKINASE [None]
  - BLOOD LACTATE DEHYDROGENASE INCREASED [None]
  - BLOOD MAGNESIUM DECREASED [None]
  - BLOOD PHOSPHORUS DECREASED [None]
  - BLOOD POTASSIUM DECREASED [None]
  - CAECITIS [None]
  - CHOLELITHIASIS [None]
  - DEHYDRATION [None]
  - DIARRHOEA [None]
  - FEBRILE NEUTROPENIA [None]
  - HAEMATOCRIT DECREASED [None]
  - HAEMOGLOBIN DECREASED [None]
  - HEART RATE INCREASED [None]
  - HEPATOMEGALY [None]
  - HYPOKALAEMIA [None]
  - HYPOTENSION [None]
  - LIPASE INCREASED [None]
  - PAIN [None]
  - PAIN IN EXTREMITY [None]
  - PANCREATITIS [None]
  - PCO2 DECREASED [None]
  - PELVIC FLUID COLLECTION [None]
  - PLATELET COUNT DECREASED [None]
  - PULMONARY MYCOSIS [None]
  - RED BLOOD CELL COUNT DECREASED [None]
  - SEPSIS [None]
  - SEPTIC EMBOLUS [None]
  - STAPHYLOCOCCAL INFECTION [None]
  - STREPTOCOCCAL BACTERAEMIA [None]
  - URINARY TRACT INFECTION [None]
  - WEIGHT DECREASED [None]
  - WHITE BLOOD CELL COUNT DECREASED [None]
